FAERS Safety Report 5240816-5 (Version None)
Quarter: 2007Q1

REPORT INFORMATION
  Report Type: 
  Country: None (occurrence: None)
  Receive Date: 20061208
  Receipt Date: 20050804
  Transmission Date: 20070707
  Serious: Yes (Other)
  Sender: FDA-Public Use
  Company Number: 2005UW10166

PATIENT
  Age: 72 Year
  Sex: Female
  Weight: 63.502 kg

DRUGS (12)
  1. CRESTOR [Suspect]
     Indication: BLOOD CHOLESTEROL INCREASED
     Dosage: 10 MG QOD PO
     Route: 048
     Dates: start: 20050601, end: 20050601
  2. CRESTOR [Suspect]
     Indication: BLOOD CHOLESTEROL INCREASED
     Dosage: 10 MG PO
     Route: 048
     Dates: start: 20040101
  3. CRESTOR [Suspect]
     Indication: BLOOD CHOLESTEROL INCREASED
  4. LEVOXYL [Concomitant]
  5. BISOPROLOL FUMARATE AND HYDROCHLOROTHIAZIDE [Concomitant]
  6. NO MATCH [Concomitant]
  7. AMBIEN [Concomitant]
  8. NATURE'S REMEDY [Concomitant]
  9. CALCIUM [Concomitant]
  10. ECOTRIN [Concomitant]
  11. RHINOCORT [Concomitant]
  12. FORMOTEROL FUMARATE [Concomitant]

REACTIONS (1)
  - HYPOAESTHESIA [None]
